FAERS Safety Report 5431543-X (Version None)
Quarter: 2007Q3

REPORT INFORMATION
  Report Type: 
  Country: None (occurrence: None)
  Receive Date: 20070830
  Receipt Date: 20070822
  Transmission Date: 20080115
  Serious: Yes (Life-Threatening)
  Sender: FDA-Public Use
  Company Number: JP-ASTRAZENECA-2007AP05372

PATIENT
  Age: 27 Year
  Sex: Male

DRUGS (5)
  1. SEROQUEL [Suspect]
     Indication: SCHIZOPHRENIA
     Route: 048
     Dates: start: 20060101, end: 20070701
  2. SEROQUEL [Suspect]
     Route: 048
     Dates: start: 20070701, end: 20070813
  3. SILECE [Concomitant]
     Route: 048
     Dates: start: 20070501, end: 20070813
  4. ZYPREXA [Concomitant]
     Route: 048
     Dates: start: 20060701, end: 20070813
  5. UNSPECIFIED DRUG [Concomitant]
     Route: 048
     Dates: start: 20051201, end: 20070813

REACTIONS (1)
  - HEPATIC FUNCTION ABNORMAL [None]
